FAERS Safety Report 26006932 (Version 3)
Quarter: 2025Q4

REPORT INFORMATION
  Report Type: Report from Study
  Country: CA (occurrence: CA)
  Receive Date: 20251106
  Receipt Date: 20251231
  Transmission Date: 20260117
  Serious: Yes (Hospitalization, Other)
  Sender: PFIZER
  Company Number: CA-PFIZER INC-PV202500129718

PATIENT
  Age: 30 Year
  Sex: Female

DRUGS (3)
  1. IXIFI [Suspect]
     Active Substance: INFLIXIMAB-QBTX
     Indication: Crohn^s disease
     Dosage: 500 MG, EVERY 4 WEEKS
     Route: 042
     Dates: start: 20250825
  2. IXIFI [Suspect]
     Active Substance: INFLIXIMAB-QBTX
     Dosage: 500 MG, EVERY 4 WEEKS
     Route: 042
     Dates: start: 20251031
  3. IXIFI [Suspect]
     Active Substance: INFLIXIMAB-QBTX
     Dosage: 500 MG, EVERY 4 WEEKS
     Route: 042
     Dates: start: 20251124

REACTIONS (5)
  - Gastric ulcer [Recovered/Resolved]
  - Influenza [Recovered/Resolved]
  - Urinary tract infection [Not Recovered/Not Resolved]
  - Oropharyngeal discomfort [Recovering/Resolving]
  - Speech disorder [Recovering/Resolving]

NARRATIVE: CASE EVENT DATE: 20250101
